FAERS Safety Report 16045659 (Version 1)
Quarter: 2019Q1

REPORT INFORMATION
  Report Type: Spontaneous
  Country: FR (occurrence: FR)
  Receive Date: 20190307
  Receipt Date: 20190307
  Transmission Date: 20190418
  Serious: Yes (Hospitalization)
  Sender: FDA-Public Use
  Company Number: FR-ACCORD-109457

PATIENT
  Age: 80 Year
  Sex: Female
  Weight: 80 kg

DRUGS (11)
  1. ATORVASTATIN ACCORD [Suspect]
     Active Substance: ATORVASTATIN
     Indication: PROPHYLAXIS
     Route: 048
     Dates: start: 20171120, end: 20171227
  2. CLOPIDOGREL [Concomitant]
     Active Substance: CLOPIDOGREL BISULFATE
  3. SMECTA [Concomitant]
     Active Substance: MONTMORILLONITE
  4. GLIMEPIRIDE. [Suspect]
     Active Substance: GLIMEPIRIDE
     Indication: DIABETES MELLITUS
     Route: 048
  5. KARDEGIC [Concomitant]
     Active Substance: ASPIRIN DL-LYSINE
     Dosage: 75 MG, POWDER FOR ORAL SOLUTION IN SACHET-DOSE
  6. ESOMEPRAZOLE/ESOMEPRAZOLE MAGNESIUM/ESOMEPRAZOLE SODIUM [Concomitant]
  7. LEVOTHYROXINE. [Concomitant]
     Active Substance: LEVOTHYROXINE
     Dosage: 100 MICROGRAMS, SCORED TABLET
  8. PHLOROGLUCINOL [Concomitant]
     Active Substance: PHLOROGLUCINOL
  9. BRILIQUE [Suspect]
     Active Substance: TICAGRELOR
     Indication: ACUTE CORONARY SYNDROME
     Dosage: STRENGTH 90 MG,
     Route: 048
  10. PERINDOPRIL/PERINDOPRIL ERBUMINE [Concomitant]
  11. BISOCE [Concomitant]
     Active Substance: BISOPROLOL
     Dosage: 2,5 MG, SCORED FILM-COATED TABLET

REACTIONS (3)
  - Diarrhoea [Recovered/Resolved]
  - Vomiting [Recovered/Resolved]
  - Food intolerance [Recovered/Resolved]

NARRATIVE: CASE EVENT DATE: 201711
